FAERS Safety Report 19115288 (Version 1)
Quarter: 2021Q2

REPORT INFORMATION
  Report Type: Spontaneous
  Country: IT (occurrence: IT)
  Receive Date: 20210409
  Receipt Date: 20210409
  Transmission Date: 20210717
  Serious: Yes (Other)
  Sender: FDA-Public Use
  Company Number: IT-MYLANLABS-2021M1021103

PATIENT
  Age: 33 Year
  Sex: Female

DRUGS (2)
  1. PREDNISONE. [Suspect]
     Active Substance: PREDNISONE
     Indication: EOSINOPHILIC CYSTITIS
     Dosage: 0.5 MG/KG
  2. PREDNISONE. [Suspect]
     Active Substance: PREDNISONE
     Dosage: LOWER THAN 12.5 MG OF PREDNISONE PER DAY

REACTIONS (6)
  - Abdominal pain [Recovered/Resolved]
  - Eosinophilic cystitis [Recovered/Resolved]
  - Drug abuse [Unknown]
  - Rebound effect [Recovered/Resolved]
  - Dysuria [Recovered/Resolved]
  - Haematuria [Recovered/Resolved]
